FAERS Safety Report 20979135 (Version 3)
Quarter: 2023Q2

REPORT INFORMATION
  Report Type: Report from Study
  Country: US (occurrence: US)
  Receive Date: 20220619
  Receipt Date: 20230615
  Transmission Date: 20230721
  Serious: Yes (Death, Other)
  Sender: FDA-Public Use
  Company Number: US-ACADIA PHARMACEUTICALS INC.-ACA-2022-PIM-001876

PATIENT
  Age: 67 Year
  Sex: Male

DRUGS (2)
  1. NUPLAZID [Suspect]
     Active Substance: PIMAVANSERIN TARTRATE
     Indication: Parkinson^s disease psychosis
     Dosage: 34 MILLIGRAM, QD
     Route: 048
     Dates: start: 20210408
  2. NUPLAZID [Suspect]
     Active Substance: PIMAVANSERIN TARTRATE
     Indication: Parkinson^s disease

REACTIONS (2)
  - Death [Recovered/Resolved]
  - Hypersomnia [Unknown]

NARRATIVE: CASE EVENT DATE: 20230523
